FAERS Safety Report 21944686 (Version 1)
Quarter: 2023Q1

REPORT INFORMATION
  Report Type: Spontaneous
  Country: None (occurrence: DK)
  Receive Date: 20230202
  Receipt Date: 20230202
  Transmission Date: 20230417
  Serious: Yes (Death, Life-Threatening, Hospitalization, Other)
  Sender: FDA-Public Use
  Company Number: DK-B.Braun Medical Inc.-2137413

PATIENT
  Age: 3 Year
  Sex: Male
  Weight: 4 kg

DRUGS (2)
  1. DEXTROSE [Suspect]
     Active Substance: DEXTROSE
  2. SODIUM CHLORIDE [Suspect]
     Active Substance: SODIUM CHLORIDE

REACTIONS (16)
  - Hypernatraemia [Fatal]
  - Condition aggravated [Fatal]
  - Circulatory collapse [Fatal]
  - Hypervolaemia [Fatal]
  - Hypotension [Fatal]
  - Mitral valve incompetence [Fatal]
  - Brain injury [Fatal]
  - Condition aggravated [Fatal]
  - Hypertension [Fatal]
  - Seizure [Fatal]
  - Electromyogram abnormal [Fatal]
  - Product label confusion [Fatal]
  - Medication error [Fatal]
  - Hyperglycaemia [Fatal]
  - Hypoperfusion [Fatal]
  - Hypernatraemia [Fatal]
